APPROVED DRUG PRODUCT: LUXZYLA
Active Ingredient: PENICILLAMINE
Strength: 250MG
Dosage Form/Route: CAPSULE;ORAL
Application: A209921 | Product #001
Applicant: ANI PHARMACEUTICALS INC
Approved: May 7, 2019 | RLD: No | RS: No | Type: DISCN